FAERS Safety Report 6691027-8 (Version None)
Quarter: 2010Q2

REPORT INFORMATION
  Report Type: 
  Country: None (occurrence: None)
  Receive Date: 20100421
  Receipt Date: 20100413
  Transmission Date: 20101027
  Serious: Yes (Hospitalization, Other)
  Sender: FDA-Public Use
  Company Number: US-ELI_LILLY_AND_COMPANY-US201004003710

PATIENT
  Sex: Male

DRUGS (14)
  1. BYETTA [Suspect]
  2. ACTOS /SCH/ [Concomitant]
     Dosage: 30 MG, DAILY (1/D)
     Route: 048
     Dates: start: 20090420
  3. ADVIL LIQUI-GELS [Concomitant]
     Dosage: UNK, 2/D
  4. ASPIRIN [Concomitant]
     Dosage: 325 MG, DAILY (1/D)
     Route: 048
  5. ASTELIN [Concomitant]
     Dosage: 137 UG, AS NEEDED
     Route: 045
  6. ETODOLAC [Concomitant]
     Dosage: 500 MG, 2/D
     Route: 048
  7. FLOVENT [Concomitant]
     Dosage: UNK, AS NEEDED
  8. VITAMINS NOS [Concomitant]
     Dosage: UNK, DAILY (1/D)
  9. POTASSIUM GLUCONATE TAB [Concomitant]
     Dosage: UNK, DAILY (1/D)
  10. PRILOSEC [Concomitant]
     Dosage: UNK, DAILY (1/D)
  11. SINGULAIR [Concomitant]
     Dosage: 10 MG, DAILY (1/D)
     Route: 048
  12. TUSSIONEX [Concomitant]
     Dosage: 5 ML, AS NEEDED
     Route: 048
     Dates: start: 20100401
  13. VENTOLIN HFA [Concomitant]
     Dosage: UNK, AS NEEDED
     Route: 055
  14. ZYRTEC [Concomitant]
     Dosage: 10 MG, DAILY (1/D)

REACTIONS (1)
  - PANCREATITIS [None]
